FAERS Safety Report 23362503 (Version 1)
Quarter: 2024Q1

REPORT INFORMATION
  Report Type: Spontaneous
  Country: US (occurrence: None)
  Receive Date: 20240103
  Receipt Date: 20240103
  Transmission Date: 20240410
  Serious: Yes (Death, Hospitalization)
  Sender: FDA-Public Use
  Company Number: None

PATIENT
  Age: 80 Year
  Sex: Female
  Weight: 106.6 kg

DRUGS (11)
  1. ENOXAPARIN [Suspect]
     Active Substance: ENOXAPARIN
     Indication: Atrial fibrillation
     Dosage: FREQUENCY : TWICE A DAY;?
     Route: 058
     Dates: start: 20231206, end: 20231209
  2. Acetaminophen Oral [Concomitant]
  3. Aspirin oral [Concomitant]
     Dates: start: 20231207, end: 20231209
  4. DEXAMETHASONE [Concomitant]
     Active Substance: DEXAMETHASONE
     Dates: start: 20231205, end: 20231210
  5. Diltiazem IV [Concomitant]
     Dates: start: 20231206, end: 20231206
  6. FLECAINIDE [Concomitant]
     Active Substance: FLECAINIDE
     Dates: start: 20231208, end: 20231210
  7. FUROSEMIDE [Concomitant]
     Active Substance: FUROSEMIDE
     Dates: start: 20231208, end: 20231209
  8. Metoprolol PO [Concomitant]
     Dates: start: 20231208, end: 20231209
  9. Ondansetron IV [Concomitant]
     Dates: start: 20231206, end: 20231208
  10. PROTAMINE [Concomitant]
     Active Substance: PROTAMINE
     Dates: start: 20231209, end: 20231209
  11. REMDESIVIR [Concomitant]
     Active Substance: REMDESIVIR
     Dates: start: 20231206, end: 20231209

REACTIONS (7)
  - COVID-19 [None]
  - Fall [None]
  - Hypotension [None]
  - Blood creatinine increased [None]
  - Intra-abdominal haematoma [None]
  - Retroperitoneal haemorrhage [None]
  - Shock haemorrhagic [None]

NARRATIVE: CASE EVENT DATE: 20231209
